FAERS Safety Report 9706503 (Version 1)
Quarter: 2013Q4

REPORT INFORMATION
  Report Type: Spontaneous
  Country: US (occurrence: US)
  Receive Date: 20131125
  Receipt Date: 20131125
  Transmission Date: 20140711
  Serious: No
  Sender: FDA-Public Use
  Company Number: US-009507513-1311USA005986

PATIENT
  Age: 26 Year
  Sex: Female

DRUGS (1)
  1. PRINIVIL [Suspect]
     Indication: FOCAL SEGMENTAL GLOMERULOSCLEROSIS
     Dosage: 40 MG, UNK
     Route: 048

REACTIONS (2)
  - Small bowel angioedema [Recovered/Resolved]
  - Small bowel angioedema [Recovered/Resolved]
